FAERS Safety Report 17674181 (Version 6)
Quarter: 2020Q3

REPORT INFORMATION
  Report Type: Spontaneous
  Country: US (occurrence: US)
  Receive Date: 20200416
  Receipt Date: 20200902
  Transmission Date: 20201102
  Serious: No
  Sender: FDA-Public Use
  Company Number: US-GLAXOSMITHKLINE-US2020AMR064618

PATIENT
  Age: 53 Year
  Sex: Female

DRUGS (4)
  1. PARP INHIBITOR [Suspect]
     Active Substance: UNSPECIFIED INGREDIENT
     Indication: PRODUCT USED FOR UNKNOWN INDICATION
     Dosage: UNK
  2. ZEJULA [Suspect]
     Active Substance: NIRAPARIB
     Dosage: 200 MG, QD
  3. ZEJULA [Suspect]
     Active Substance: NIRAPARIB
     Dosage: 200 MG, QD
  4. ZEJULA [Suspect]
     Active Substance: NIRAPARIB
     Indication: OVARIAN CANCER
     Dosage: 100 MG, QD
     Dates: start: 20200311

REACTIONS (21)
  - Sleep disorder [Unknown]
  - Screaming [Unknown]
  - Insomnia [Unknown]
  - Glomerular filtration rate decreased [Unknown]
  - Pollakiuria [Unknown]
  - Nausea [Recovering/Resolving]
  - Gallbladder operation [Unknown]
  - Dyspnoea [Unknown]
  - Urinary tract infection [Unknown]
  - Nasal dryness [Unknown]
  - Fatigue [Unknown]
  - Chest pain [Unknown]
  - Abdominal pain [Recovering/Resolving]
  - Biliary colic [Unknown]
  - Post procedural bile leak [Unknown]
  - Rhinorrhoea [Unknown]
  - Nightmare [Unknown]
  - Blood creatinine increased [Unknown]
  - Dysuria [Unknown]
  - Gait disturbance [Unknown]
  - Product dose omission issue [Unknown]

NARRATIVE: CASE EVENT DATE: 20200812
